FAERS Safety Report 5644605-9 (Version None)
Quarter: 2008Q1

REPORT INFORMATION
  Report Type: 
  Country: None (occurrence: None)
  Receive Date: 20080229
  Receipt Date: 20070406
  Transmission Date: 20080703
  Serious: No
  Sender: FDA-Public Use
  Company Number: A0646193A

PATIENT
  Age: 75 Year
  Sex: Male

DRUGS (6)
  1. VALTREX [Suspect]
     Dosage: 1G THREE TIMES PER DAY
     Route: 048
     Dates: start: 20070404
  2. PREDNISONE TAB [Concomitant]
  3. FLOMAX [Concomitant]
  4. NORVASC [Concomitant]
  5. CATAPRES [Concomitant]
  6. THYROID TAB [Concomitant]

REACTIONS (1)
  - FAECES DISCOLOURED [None]
